FAERS Safety Report 10173123 (Version 3)
Quarter: 2014Q2

REPORT INFORMATION
  Report Type: Spontaneous
  Country: US (occurrence: US)
  Receive Date: 20140515
  Receipt Date: 20140610
  Transmission Date: 20141212
  Serious: No
  Sender: FDA-Public Use
  Company Number: US-PFIZER INC-2014128524

PATIENT
  Age: 59 Year
  Sex: Female

DRUGS (5)
  1. LIPITOR [Suspect]
     Indication: ARTERIOSCLEROSIS
     Dosage: 10 MG, UNK
  2. LIPITOR [Suspect]
     Dosage: 20 MG, UNK
  3. WELLBUTRIN XL [Concomitant]
     Dosage: 150, QD
  4. LAMICTAL [Concomitant]
     Dosage: 200, 1X/DAY
  5. LOTREL [Concomitant]
     Dosage: AMLODIPINE 5/ BENAZEPRIL HYDROCHLORIDE 10, QD

REACTIONS (8)
  - Fatigue [Unknown]
  - Muscular weakness [Recovered/Resolved]
  - Myalgia [Recovered/Resolved]
  - Vitamin D deficiency [Unknown]
  - Pain [Unknown]
  - Activities of daily living impaired [Unknown]
  - Muscle spasms [Recovered/Resolved]
  - Myalgia [Not Recovered/Not Resolved]
